FAERS Safety Report 20326888 (Version 4)
Quarter: 2022Q3

REPORT INFORMATION
  Report Type: Spontaneous
  Country: CA (occurrence: CA)
  Receive Date: 20220112
  Receipt Date: 20220816
  Transmission Date: 20221027
  Serious: Yes (Other)
  Sender: FDA-Public Use
  Company Number: CA-PFIZER INC-202200004381

PATIENT
  Age: 48 Year
  Sex: Male

DRUGS (2)
  1. SOMAVERT [Suspect]
     Active Substance: PEGVISOMANT
     Indication: Acromegaly
     Dosage: 20 MG, 1X/DAY
     Route: 058
     Dates: start: 20160307
  2. SANDOSTATIN [Concomitant]
     Active Substance: OCTREOTIDE ACETATE
     Dosage: 40 MG, EVERY 4 WEEKS
     Route: 065

REACTIONS (9)
  - Cardiac disorder [Not Recovered/Not Resolved]
  - Pneumothorax [Recovered/Resolved]
  - Haemorrhage [Recovered/Resolved]
  - Blood prolactin increased [Not Recovered/Not Resolved]
  - COVID-19 [Recovered/Resolved]
  - Blood pressure decreased [Unknown]
  - Arthralgia [Unknown]
  - Bursitis [Unknown]
  - Osteoarthritis [Unknown]

NARRATIVE: CASE EVENT DATE: 20220101
